FAERS Safety Report 16204444 (Version 1)
Quarter: 2019Q2

REPORT INFORMATION
  Report Type: Spontaneous
  Country: US (occurrence: US)
  Receive Date: 20190416
  Receipt Date: 20190416
  Transmission Date: 20190711
  Serious: No
  Sender: FDA-Public Use
  Company Number: US-BAUSCH-BL-2019-009912

PATIENT
  Age: 72 Year
  Sex: Female

DRUGS (3)
  1. KETOROLAC [Concomitant]
     Active Substance: KETOROLAC\KETOROLAC TROMETHAMINE
     Indication: PRODUCT USED FOR UNKNOWN INDICATION
     Dosage: LEFT EYE
     Route: 047
  2. LOTEMAX [Suspect]
     Active Substance: LOTEPREDNOL ETABONATE
     Indication: POST PROCEDURAL INFLAMMATION
     Dosage: 1 DROP IN EACH EYE, AS DIRECTED
     Route: 047
     Dates: start: 20190328
  3. LOTEMAX [Suspect]
     Active Substance: LOTEPREDNOL ETABONATE
     Indication: CORNEAL OEDEMA

REACTIONS (2)
  - Product quality issue [Unknown]
  - Foreign body in eye [Not Recovered/Not Resolved]

NARRATIVE: CASE EVENT DATE: 20190328
